FAERS Safety Report 6897530-X (Version None)
Quarter: 2010Q3

REPORT INFORMATION
  Report Type: 
  Country: None (occurrence: None)
  Receive Date: 20100802
  Receipt Date: 20070703
  Transmission Date: 20110219
  Serious: No
  Sender: FDA-Public Use
  Company Number: US-PFIZER INC-2006050864

PATIENT
  Sex: Female
  Weight: 63.5 kg

DRUGS (7)
  1. LYRICA [Suspect]
     Indication: MULTIPLE SCLEROSIS
     Route: 048
     Dates: start: 20060401, end: 20060411
  2. COPAXONE [Concomitant]
     Route: 065
  3. AMANTADINE HCL [Concomitant]
     Route: 065
  4. ALTACE [Concomitant]
     Route: 065
  5. DETROL [Concomitant]
     Route: 065
  6. BACLOFEN [Concomitant]
     Route: 065
  7. VITAMINS [Concomitant]
     Route: 065

REACTIONS (3)
  - ERYTHEMA [None]
  - FEELING HOT [None]
  - OEDEMA PERIPHERAL [None]
